FAERS Safety Report 20127094 (Version 1)
Quarter: 2021Q4

REPORT INFORMATION
  Report Type: Spontaneous
  Country: US (occurrence: US)
  Receive Date: 20211129
  Receipt Date: 20211129
  Transmission Date: 20220304
  Serious: No
  Sender: FDA-Public Use
  Company Number: US-SANOFI-00857352

PATIENT
  Age: 41 Year
  Sex: Female

DRUGS (2)
  1. IMOVAX [Suspect]
     Active Substance: RABIES VACCINE\RABIES VIRUS STRAIN PM-1503-3M ANTIGEN (PROPIOLACTONE INACTIVATED)
     Indication: Immunisation
     Route: 065
     Dates: start: 202109
  2. IMOGAM RABIES [Suspect]
     Active Substance: HUMAN RABIES VIRUS IMMUNE GLOBULIN
     Dosage: UNK
     Route: 065
     Dates: start: 202109

REACTIONS (6)
  - Burning sensation [Unknown]
  - Muscular weakness [Unknown]
  - Gait disturbance [Unknown]
  - Asthenia [Unknown]
  - Trigeminal neuralgia [Unknown]
  - Hypersensitivity [Unknown]
